FAERS Safety Report 8459137-2 (Version None)
Quarter: 2012Q2

REPORT INFORMATION
  Report Type: 
  Country: None (occurrence: None)
  Receive Date: 20120622
  Receipt Date: 20120620
  Transmission Date: 20120825
  Serious: Yes (Death)
  Sender: FDA-Public Use
  Company Number: CA-B.I. PHARMACEUTICALS,INC./RIDGEFIELD-2012-CN-01105CN

PATIENT
  Age: 79 Year
  Sex: Male

DRUGS (4)
  1. METOPROLOL [Concomitant]
  2. LIPITOR [Concomitant]
  3. ACCUPRIL [Concomitant]
  4. PRADAXA [Suspect]

REACTIONS (1)
  - CEREBROVASCULAR ACCIDENT [None]
